FAERS Safety Report 13022501 (Version 6)
Quarter: 2021Q4

REPORT INFORMATION
  Report Type: Spontaneous
  Country: US (occurrence: US)
  Receive Date: 20161213
  Receipt Date: 20211116
  Transmission Date: 20220303
  Serious: Yes (Other)
  Sender: FDA-Public Use
  Company Number: US-PFIZER INC-2016522630

PATIENT
  Age: 59 Year
  Sex: Male

DRUGS (20)
  1. VINCRISTINE SULFATE [Suspect]
     Active Substance: VINCRISTINE SULFATE
     Indication: Acute lymphocytic leukaemia
     Dosage: UNK [(CYCLE 1 DAY 1), TOTAL OF 4 CYCLES ADMINISTERED (1 IN 1 CYCLICAL)]
     Dates: start: 20140819
  2. VINCRISTINE SULFATE [Suspect]
     Active Substance: VINCRISTINE SULFATE
     Indication: B-cell type acute leukaemia
  3. VINCRISTINE SULFATE [Suspect]
     Active Substance: VINCRISTINE SULFATE
     Indication: Central nervous system leukaemia
  4. METHOTREXATE SODIUM [Suspect]
     Active Substance: METHOTREXATE SODIUM
     Dosage: UNK
     Dates: start: 20160923
  5. METHYLPREDNISOLONE [Suspect]
     Active Substance: METHYLPREDNISOLONE
     Dosage: UNK
  6. DOXORUBICIN HYDROCHLORIDE [Suspect]
     Active Substance: DOXORUBICIN HYDROCHLORIDE
     Indication: Acute lymphocytic leukaemia
     Dosage: UNK [(CYCLE 1 DAY 1), TOTAL OF 4 CYCLES ADMINISTERED (1 IN 1 CYCLICAL)]
     Dates: start: 20140819
  7. DOXORUBICIN HYDROCHLORIDE [Suspect]
     Active Substance: DOXORUBICIN HYDROCHLORIDE
     Indication: B-cell type acute leukaemia
  8. DOXORUBICIN HYDROCHLORIDE [Suspect]
     Active Substance: DOXORUBICIN HYDROCHLORIDE
     Indication: Central nervous system leukaemia
  9. THYMOCYTE IMMUNE GLOBULIN NOS [Suspect]
     Active Substance: THYMOCYTE IMMUNE GLOBULIN NOS
     Indication: Prophylaxis against graft versus host disease
     Dosage: UNK [TWO DOSES ON DAY -2 AND DAY -1 PRIOR TO STEM CELL INFUSION]
  10. DEXAMETHASONE [Suspect]
     Active Substance: DEXAMETHASONE
     Indication: Acute lymphocytic leukaemia
     Dosage: UNK [(CYCLE 1 DAY 1), TOTAL OF 4 CYCLES ADMINISTERED (1 IN 1 CYCLICAL)]
     Dates: start: 20140819
  11. DEXAMETHASONE [Suspect]
     Active Substance: DEXAMETHASONE
     Indication: B-cell type acute leukaemia
  12. DEXAMETHASONE [Suspect]
     Active Substance: DEXAMETHASONE
     Indication: Central nervous system leukaemia
  13. CYCLOPHOSPHAMIDE [Suspect]
     Active Substance: CYCLOPHOSPHAMIDE
     Indication: Acute lymphocytic leukaemia
     Dosage: UNK [(CYCLE 1 DAY 1), TOTAL OF 4 CYCLES ADMINISTERED (1 IN 1 CYCLICAL)]
     Dates: start: 20140819
  14. CYCLOPHOSPHAMIDE [Suspect]
     Active Substance: CYCLOPHOSPHAMIDE
     Indication: B-cell type acute leukaemia
  15. CYCLOPHOSPHAMIDE [Suspect]
     Active Substance: CYCLOPHOSPHAMIDE
     Indication: Central nervous system leukaemia
  16. CYCLOPHOSPHAMIDE [Suspect]
     Active Substance: CYCLOPHOSPHAMIDE
     Indication: Bone marrow conditioning regimen
  17. LEUCOVORIN [Suspect]
     Active Substance: LEUCOVORIN
     Dosage: UNK
  18. BUSULFAN [Suspect]
     Active Substance: BUSULFAN
     Indication: Bone marrow conditioning regimen
  19. CYCLOSPORINE [Suspect]
     Active Substance: CYCLOSPORINE
     Indication: Prophylaxis against graft versus host disease
     Dosage: 25 MG, 2X/DAY [25 MG, 2 IN 1 D]
  20. CYCLOSPORINE [Suspect]
     Active Substance: CYCLOSPORINE
     Dosage: TAPERING DOSE

REACTIONS (5)
  - Graft versus host disease in gastrointestinal tract [Unknown]
  - Acute graft versus host disease in skin [Unknown]
  - Neoplasm progression [Unknown]
  - Transaminases increased [Unknown]
  - Off label use [Unknown]

NARRATIVE: CASE EVENT DATE: 20160811
